FAERS Safety Report 4353883-8 (Version None)
Quarter: 2004Q2

REPORT INFORMATION
  Report Type: 
  Country: None (occurrence: None)
  Receive Date: 20040430
  Receipt Date: 20040419
  Transmission Date: 20050107
  Serious: Yes (Hospitalization)
  Sender: FDA-Public Use
  Company Number: 04P-062-0258097-00

PATIENT
  Age: 32 Year
  Sex: 0

DRUGS (3)
  1. AKINETON [Suspect]
     Indication: SUICIDE ATTEMPT
     Dosage: 50 MG OR 100 MG, 25 TABLETS, ONCE, PER ORAL
     Route: 048
     Dates: start: 20040401, end: 20040401
  2. PROMAZINE HCL [Suspect]
     Indication: SUICIDE ATTEMPT
     Dosage: 100 MG, 75 TABLETS, ONCE
     Dates: start: 20040401, end: 20040401
  3. CLOZAPINE [Suspect]
     Indication: SUICIDE ATTEMPT
     Dosage: 200 MG, 20 TABLETS, ONCE
     Dates: start: 20040401, end: 20040401

REACTIONS (3)
  - COMA [None]
  - MULTIPLE DRUG OVERDOSE [None]
  - SUICIDE ATTEMPT [None]
